FAERS Safety Report 9735474 (Version 1)
Quarter: 2013Q4

REPORT INFORMATION
  Report Type: Spontaneous
  Country: US (occurrence: US)
  Receive Date: 20131206
  Receipt Date: 20131206
  Transmission Date: 20140711
  Serious: No
  Sender: FDA-Public Use
  Company Number: US-GILEAD-2009-0023317

PATIENT
  Age: 73 Year
  Sex: Female
  Weight: 65.77 kg

DRUGS (15)
  1. LETAIRIS [Suspect]
     Indication: PULMONARY ARTERIAL HYPERTENSION
     Route: 048
     Dates: start: 20071228
  2. CRESTOR [Concomitant]
  3. ATUCAND [Concomitant]
  4. LASIX [Concomitant]
  5. ASA [Concomitant]
  6. PROVENTIL [Concomitant]
  7. SPIRIVA INHALER [Concomitant]
  8. SINGULAIR [Concomitant]
  9. MOBIC [Concomitant]
  10. LEXAPRO [Concomitant]
  11. NEXIUM [Concomitant]
  12. MIRALAX [Concomitant]
  13. OSCAL [Concomitant]
  14. K DUR [Concomitant]
  15. TANDEM PLUS [Concomitant]

REACTIONS (1)
  - Hot flush [Not Recovered/Not Resolved]
